FAERS Safety Report 4866054-3 (Version None)
Quarter: 2005Q4

REPORT INFORMATION
  Report Type: 
  Country: None (occurrence: None)
  Receive Date: 20051221
  Receipt Date: 20051206
  Transmission Date: 20060501
  Serious: Yes (Other)
  Sender: FDA-Public Use
  Company Number: PHEH2005US13252

PATIENT
  Sex: Male

DRUGS (1)
  1. VISUDYNE [Suspect]
     Dates: start: 20050101, end: 20050101

REACTIONS (1)
  - AMYOTROPHIC LATERAL SCLEROSIS [None]
